FAERS Safety Report 9314666 (Version 1)
Quarter: 2013Q2

REPORT INFORMATION
  Report Type: Spontaneous
  Country: GB (occurrence: GB)
  Receive Date: 20130529
  Receipt Date: 20130529
  Transmission Date: 20140414
  Serious: Yes (Life-Threatening, Other)
  Sender: FDA-Public Use
  Company Number: GB-ASTRAZENECA-2013SE36294

PATIENT
  Age: 66 Year
  Sex: Female
  Weight: 80 kg

DRUGS (4)
  1. PROPOFOL [Suspect]
     Indication: MECHANICAL VENTILATION
     Dosage: 20 MG/HR
     Route: 042
     Dates: start: 20130113
  2. REMIFENTANIL [Suspect]
     Dosage: 1.3 MCG/KG/HR
     Route: 065
     Dates: start: 20130113
  3. DEXDOR [Suspect]
     Indication: WEAN FROM VENTILATOR
     Dosage: 1.2 MCG/KG/HR
     Route: 042
     Dates: start: 20130115, end: 20130116
  4. DEXDOR [Suspect]
     Indication: WEAN FROM VENTILATOR
     Dosage: 0.9 MCG/KG/MIN
     Route: 042

REACTIONS (3)
  - Extubation [Unknown]
  - Confusional state [Unknown]
  - Agitation [Unknown]
